FAERS Safety Report 7920005-3 (Version None)
Quarter: 2011Q4

REPORT INFORMATION
  Report Type: 
  Country: None (occurrence: None)
  Receive Date: 20111117
  Receipt Date: 20111107
  Transmission Date: 20120403
  Serious: Yes (Hospitalization)
  Sender: FDA-Public Use
  Company Number: US-BRISTOL-MYERS SQUIBB COMPANY-16217770

PATIENT
  Age: 52 Year
  Sex: Male

DRUGS (9)
  1. HUMULIN R [Concomitant]
     Dosage: 1 DOSAGE FORM = 500 UNITS
  2. SIMVASTATIN [Concomitant]
     Indication: BLOOD CHOLESTEROL INCREASED
  3. SAXAGLIPTIN+METFORMIN HCL [Suspect]
     Indication: DIABETES MELLITUS
     Dates: start: 20110204, end: 20111107
  4. ABILIFY [Concomitant]
     Indication: BIPOLAR DISORDER
     Dates: start: 20081231
  5. LISINOPRIL AND HYDROCHLOROTHIAZIDE [Concomitant]
  6. RANITIDINE [Concomitant]
     Indication: GASTROOESOPHAGEAL REFLUX DISEASE
  7. QUETIAPINE [Concomitant]
     Indication: SCHIZOPHRENIA
  8. ABILIFY [Concomitant]
     Indication: SCHIZOPHRENIA
     Dates: start: 20081231
  9. ATENOLOL [Concomitant]
     Indication: HYPERTENSION

REACTIONS (1)
  - PANCREATITIS [None]
